FAERS Safety Report 11420819 (Version 5)
Quarter: 2019Q4

REPORT INFORMATION
  Report Type: Spontaneous
  Country: US (occurrence: US)
  Receive Date: 20150826
  Receipt Date: 20191122
  Transmission Date: 20200122
  Serious: Yes (Other)
  Sender: FDA-Public Use
  Company Number: US-ASTRAZENECA-2015SE80593

PATIENT
  Age: 80 Year
  Sex: Male
  Weight: 90.7 kg

DRUGS (24)
  1. CRESTOR [Suspect]
     Active Substance: ROSUVASTATIN CALCIUM
     Indication: VASCULAR GRAFT
     Route: 048
     Dates: start: 2011, end: 20150731
  2. COENZYME Q10 [Concomitant]
     Active Substance: UBIDECARENONE
  3. VITAMIN C [Concomitant]
     Active Substance: ASCORBIC ACID
  4. ASPIR 81 [Concomitant]
     Active Substance: ASPIRIN
  5. METOPROLOL SUCCINATE. [Suspect]
     Active Substance: METOPROLOL SUCCINATE
     Indication: CARDIAC MURMUR
     Route: 048
     Dates: start: 200312
  6. SYNTHROID [Concomitant]
     Active Substance: LEVOTHYROXINE SODIUM
     Dosage: 100 MCG 1 TABLET ON AN EMPTY STOMACH IN THE MORNING ONCE A DAY
  7. NEURONTIN [Concomitant]
     Active Substance: GABAPENTIN
     Dosage: 3 TIMES PER DAY
  8. COUMADIN [Concomitant]
     Active Substance: WARFARIN SODIUM
  9. CELEBREX [Concomitant]
     Active Substance: CELECOXIB
  10. COD LIVER OIL SOFT GEL [Concomitant]
     Dates: start: 2011
  11. SLOW NIACIN [Concomitant]
     Dates: start: 200312
  12. LIPITOR [Concomitant]
     Active Substance: ATORVASTATIN CALCIUM
  13. ZOCOR [Concomitant]
     Active Substance: SIMVASTATIN
  14. FLAXSEED [Concomitant]
     Active Substance: FLAX SEED
     Dosage: DAILY
     Dates: start: 2004
  15. ECOTRIN [Concomitant]
     Active Substance: ASPIRIN
     Dates: start: 200312
  16. ZETIA [Concomitant]
     Active Substance: EZETIMIBE
  17. CRESTOR [Suspect]
     Active Substance: ROSUVASTATIN CALCIUM
     Indication: BLOOD CHOLESTEROL
     Route: 048
     Dates: start: 2011, end: 201508
  18. CENTRUM MULTIVITES [Concomitant]
  19. ZOLPIDEM TARTRATE. [Concomitant]
     Active Substance: ZOLPIDEM TARTRATE
  20. CRESTOR [Suspect]
     Active Substance: ROSUVASTATIN CALCIUM
     Indication: BLOOD CHOLESTEROL
     Route: 048
     Dates: start: 2011, end: 20150731
  21. CRESTOR [Suspect]
     Active Substance: ROSUVASTATIN CALCIUM
     Indication: VASCULAR GRAFT
     Route: 048
     Dates: start: 2011, end: 201508
  22. FOLTX [Concomitant]
     Active Substance: CYANOCOBALAMIN CO-57\FOLIC ACID\PYRIDOXINE HYDROCHLORIDE
     Dates: start: 200312
  23. VITAMIN D [Concomitant]
     Active Substance: VITAMIN D NOS
     Dosage: 1000 UNIT TABLET 1 TABLET ONCE A DAY
  24. PLAVIX [Concomitant]
     Active Substance: CLOPIDOGREL BISULFATE

REACTIONS (36)
  - Angina pectoris [Unknown]
  - Eosinophil count increased [Unknown]
  - Spinal stenosis [Unknown]
  - Nerve injury [Unknown]
  - Tenderness [Unknown]
  - Arthropathy [Unknown]
  - Hypothyroidism [Unknown]
  - Back pain [Not Recovered/Not Resolved]
  - Hypertension [Unknown]
  - Sacroiliitis [Unknown]
  - Dyspnoea [Unknown]
  - Blood glucose increased [Unknown]
  - Cardiomegaly [Unknown]
  - Lumbar vertebral fracture [Unknown]
  - Platelet count decreased [Unknown]
  - Hypertensive heart disease [Unknown]
  - Gait disturbance [Not Recovered/Not Resolved]
  - Blood urea nitrogen/creatinine ratio increased [Unknown]
  - Blood creatinine decreased [Unknown]
  - Cholelithiasis [Unknown]
  - Muscle disorder [Unknown]
  - Intentional product misuse [Unknown]
  - Polyarthritis [Unknown]
  - Chest pain [Unknown]
  - Product use issue [Unknown]
  - Vitamin D decreased [Unknown]
  - Musculoskeletal stiffness [Not Recovered/Not Resolved]
  - Pain [Not Recovered/Not Resolved]
  - Electrocardiogram abnormal [Unknown]
  - Left ventricular hypertrophy [Unknown]
  - Hyperlipidaemia [Unknown]
  - Mitral valve disease [Unknown]
  - Pain in extremity [Recovered/Resolved]
  - Arthralgia [Unknown]
  - Depression [Unknown]
  - Product use in unapproved indication [Unknown]

NARRATIVE: CASE EVENT DATE: 200312
